FAERS Safety Report 9397459 (Version 3)
Quarter: 2013Q3

REPORT INFORMATION
  Report Type: Spontaneous
  Country: CO (occurrence: CO)
  Receive Date: 20130712
  Receipt Date: 20130725
  Transmission Date: 20140515
  Serious: Yes (Death)
  Sender: FDA-Public Use
  Company Number: CO-PFIZER INC-2013205172

PATIENT
  Age: 68 Year
  Sex: Female

DRUGS (2)
  1. OLMETEC [Suspect]
     Dosage: 40 MG, DAILY
     Route: 048
     Dates: start: 2012
  2. NORVAS [Suspect]
     Dosage: 5 MG, DAILY
     Route: 048
     Dates: start: 2012

REACTIONS (1)
  - Intracranial aneurysm [Fatal]
